FAERS Safety Report 6533482-X (Version None)
Quarter: 2010Q1

REPORT INFORMATION
  Report Type: 
  Country: None (occurrence: None)
  Receive Date: 20100111
  Receipt Date: 20090907
  Transmission Date: 20100710
  Serious: Yes (Hospitalization, Other)
  Sender: FDA-Public Use
  Company Number: SE-SANOFI-AVENTIS-200917488GDDC

PATIENT
  Age: 80 Year
  Sex: Male
  Weight: 76.2 kg

DRUGS (10)
  1. AFLIBERCEPT [Suspect]
     Dosage: DOSE UNIT: 6 MG/KG
     Route: 042
     Dates: start: 20090630, end: 20090630
  2. DOCETAXEL [Suspect]
     Dosage: DOSE UNIT: 75 MG/M**2
     Route: 042
     Dates: start: 20090630, end: 20090630
  3. PREDNISONE [Suspect]
     Dosage: DOSE UNIT: 5 MG
     Route: 048
     Dates: start: 20090219, end: 20090730
  4. SUPREFACT [Concomitant]
     Indication: HORMONE REPLACEMENT THERAPY
     Dosage: DOSE AS USED: UNK
     Dates: start: 20080627
  5. OMEPRAZOLE [Concomitant]
     Dosage: DOSE AS USED: UNK
     Dates: start: 20090205
  6. CIPROXIN /DEN/ [Concomitant]
     Dosage: DOSE AS USED: UNK
     Dates: start: 20090304
  7. NEULASTA [Concomitant]
     Dosage: DOSE AS USED: UNK
     Dates: start: 20090407
  8. MERONEM [Concomitant]
     Dosage: DOSE AS USED: UNK
     Dates: start: 20090301, end: 20090303
  9. DIFLUCAN [Concomitant]
     Dosage: DOSE AS USED: UNK
     Dates: start: 20090301, end: 20090303
  10. ACICLOVIR [Concomitant]
     Dosage: DOSE AS USED: UNK
     Dates: start: 20090301, end: 20090303

REACTIONS (2)
  - CORNEAL EROSION [None]
  - PROTEINURIA [None]
